FAERS Safety Report 5613655-0 (Version None)
Quarter: 2008Q1

REPORT INFORMATION
  Report Type: 
  Country: None (occurrence: None)
  Receive Date: 20080205
  Receipt Date: 20080129
  Transmission Date: 20080703
  Serious: Yes (Other)
  Sender: FDA-Public Use
  Company Number: CA-JNJFOC-20080107294

PATIENT
  Sex: Female
  Weight: 87.3 kg

DRUGS (2)
  1. REMICADE [Suspect]
     Indication: ARTHRITIS
     Dosage: 5TH INFUSION
     Route: 042
  2. REMICADE [Suspect]
     Indication: PSORIASIS
     Route: 042

REACTIONS (2)
  - ARTHRITIS [None]
  - DRUG INEFFECTIVE [None]
